FAERS Safety Report 18262911 (Version 1)
Quarter: 2020Q3

REPORT INFORMATION
  Report Type: Spontaneous
  Country: ES (occurrence: ES)
  Receive Date: 20200914
  Receipt Date: 20200914
  Transmission Date: 20201103
  Serious: Yes (Other)
  Sender: FDA-Public Use
  Company Number: ES-009507513-2009ESP002360

PATIENT
  Age: 83 Year
  Sex: Female
  Weight: 72 kg

DRUGS (8)
  1. OLMETEC PLUS [Concomitant]
     Active Substance: HYDROCHLOROTHIAZIDE\OLMESARTAN MEDOXOMIL
     Indication: HYPERTENSION
     Dosage: 1 TABLET DAILY
     Dates: start: 20160422
  2. MYSOLINE [Concomitant]
     Active Substance: PRIMIDONE
     Indication: ESSENTIAL TREMOR
     Dosage: 750 MG, DAILY, 2 AND A HALF TABLETS DAILY
     Dates: start: 20171110
  3. JARDIANCE [Suspect]
     Active Substance: EMPAGLIFLOZIN
     Indication: TYPE 2 DIABETES MELLITUS
     Dosage: 1 TABLET DAILY
     Dates: start: 20190408
  4. BETMIGA [Concomitant]
     Active Substance: MIRABEGRON
     Indication: DYSURIA
     Dosage: 1 TABLET AT NIGHT
     Dates: start: 20181204
  5. VELMETIA [Suspect]
     Active Substance: METFORMIN\SITAGLIPTIN
     Indication: TYPE 2 DIABETES MELLITUS
     Dosage: 1 TABL EVERY 12 H
     Dates: start: 20180326
  6. CROMATONBIC B12 [Concomitant]
     Indication: VITAMIN B12 DEFICIENCY
     Dosage: 1 AMPOULE EVERY  30 DAYS
     Dates: start: 20160801
  7. EZETIMIBE (+) ROSUVASTATIN ZINC [Concomitant]
     Indication: TYPE IIA HYPERLIPIDAEMIA
     Dosage: 1 CAPSULE DAILY
     Dates: start: 20181001
  8. MIRAPEXIN [Concomitant]
     Active Substance: PRAMIPEXOLE
     Indication: ESSENTIAL TREMOR
     Dosage: 1.05 MG QD, 1 TABLET DAILY
     Dates: start: 20170415

REACTIONS (2)
  - Urinary tract infection [Recovering/Resolving]
  - Metabolic acidosis [Recovered/Resolved]

NARRATIVE: CASE EVENT DATE: 20200701
